FAERS Safety Report 20146765 (Version 4)
Quarter: 2022Q1

REPORT INFORMATION
  Report Type: Other
  Country: US (occurrence: US)
  Receive Date: 20211203
  Receipt Date: 20220131
  Transmission Date: 20220423
  Serious: Yes (Hospitalization, Other)
  Sender: FDA-Public Use
  Company Number: US-BIOGEN-2021BI01063165

PATIENT
  Age: 51 Year
  Sex: Female
  Weight: 76 kg

DRUGS (17)
  1. AMPYRA [Suspect]
     Active Substance: DALFAMPRIDINE
     Indication: Multiple sclerosis
     Dosage: 10 MILLIGRAM, Q 12 HRS
     Route: 048
     Dates: start: 20210226
  2. AMPYRA [Suspect]
     Active Substance: DALFAMPRIDINE
     Indication: Muscle spasticity
  3. AMPYRA [Suspect]
     Active Substance: DALFAMPRIDINE
     Indication: Gait disturbance
  4. TYSABRI [Suspect]
     Active Substance: NATALIZUMAB
     Indication: Multiple sclerosis
     Dosage: 300 MILLIGRAM EVERY 4 WEEKS
     Route: 065
     Dates: start: 20191119, end: 202109
  5. LEVAQUIN [Suspect]
     Active Substance: LEVOFLOXACIN
     Indication: Urinary tract infection
     Dosage: 750 MILLIGRAM, QD
     Route: 048
     Dates: start: 20211014, end: 20211021
  6. CULTURELLE DIGESTIVE HEALTH 10 BILLION CELL [Concomitant]
     Indication: Product used for unknown indication
     Dosage: 200 MILLIGRAM, QD
     Route: 048
  7. Oxybutinin Chloride [Concomitant]
     Indication: Product used for unknown indication
     Dosage: 5 MILLIGRAM, TID
     Route: 048
     Dates: start: 20141030
  8. FERROUS SULFATE [Concomitant]
     Active Substance: FERROUS SULFATE
     Indication: Product used for unknown indication
     Dosage: 325 MILLIGRAM, QD
     Route: 048
     Dates: start: 20160120
  9. VITAMIN D3 [Concomitant]
     Active Substance: CHOLECALCIFEROL
     Indication: Product used for unknown indication
     Dosage: 2000 INTERNATIONAL UNIT, QD
     Route: 048
     Dates: start: 20171025
  10. CANNABIDIOL [Concomitant]
     Active Substance: CANNABIDIOL
     Indication: Product used for unknown indication
     Dosage: UNK
     Route: 065
     Dates: start: 20190913
  11. MIRALAX [Concomitant]
     Active Substance: POLYETHYLENE GLYCOL 3350
     Indication: Product used for unknown indication
     Dosage: 17 GRAM, QD
     Route: 048
     Dates: start: 20191030
  12. TUMS [Concomitant]
     Active Substance: CALCIUM CARBONATE
     Indication: Abdominal discomfort
     Dosage: 200 MILLIGRAM, BID
     Route: 048
     Dates: start: 20191030
  13. COLACE [Concomitant]
     Active Substance: DOCUSATE SODIUM
     Indication: Abdominal distension
     Dosage: 100 MILLIGRAM, BID
     Route: 048
     Dates: start: 20191030
  14. DULOXETINE [Concomitant]
     Active Substance: DULOXETINE
     Indication: Product used for unknown indication
     Dosage: 60 MILLIGRAM, QD
     Route: 048
     Dates: start: 20191230
  15. Calcium 500 [Concomitant]
     Indication: Product used for unknown indication
     Dosage: 500 MILLIGRAM, QD
     Route: 048
     Dates: start: 20191001
  16. ACETAMINOPHEN\DIPHENHYDRAMINE HYDROCHLORIDE [Concomitant]
     Active Substance: ACETAMINOPHEN\DIPHENHYDRAMINE HYDROCHLORIDE
     Indication: Sleep disorder
     Dosage: 25-500MG, PRN
     Route: 048
     Dates: start: 20191001
  17. TYLENOL [Concomitant]
     Active Substance: ACETAMINOPHEN
     Indication: Pain
     Dosage: 650 MILLIGRAM EVERY 4 HOURS
     Route: 048
     Dates: start: 20191016

REACTIONS (14)
  - Escherichia sepsis [Recovered/Resolved]
  - Escherichia urinary tract infection [Recovered/Resolved]
  - Fall [Unknown]
  - Gait inability [Unknown]
  - Condition aggravated [Unknown]
  - Muscular weakness [Unknown]
  - Tachycardia [Unknown]
  - Oxygen saturation abnormal [Unknown]
  - Malaise [Unknown]
  - Multiple sclerosis relapse [Unknown]
  - Seizure [Recovered/Resolved]
  - Contraindicated product administered [Unknown]
  - Hypertension [Unknown]
  - Off label use [Unknown]

NARRATIVE: CASE EVENT DATE: 20211011
